FAERS Safety Report 8060212-5 (Version None)
Quarter: 2012Q1

REPORT INFORMATION
  Report Type: 
  Country: None (occurrence: None)
  Receive Date: 20120120
  Receipt Date: 20111004
  Transmission Date: 20120608
  Serious: No
  Sender: FDA-Public Use
  Company Number: US-NOVEN-11US003364

PATIENT
  Sex: Female

DRUGS (11)
  1. HUMIRA [Concomitant]
     Indication: CROHN'S DISEASE
     Dosage: EVERY 2 WEEKS
     Route: 058
  2. VITAMIN D [Concomitant]
     Indication: PRODUCT USED FOR UNKNOWN INDICATION
     Dosage: 50000 U, 2/WK
     Route: 048
  3. UNSPECIFIED MUSCLE RELAXER [Concomitant]
     Dosage: PRN
     Route: 048
  4. FENTANYL [Suspect]
     Indication: PAIN
     Dosage: 75 UG, EVERY 3 DAYS
     Route: 062
     Dates: start: 20110916, end: 20111006
  5. MIRVAN [Concomitant]
     Indication: ANXIETY
     Dosage: 1 MG, PRN
     Route: 048
  6. HUMIRA [Concomitant]
     Indication: RHEUMATOID ARTHRITIS
  7. BENTYL [Concomitant]
     Indication: ABDOMINAL PAIN UPPER
     Dosage: 10 MG, PRN
     Route: 048
  8. COLACE [Concomitant]
     Dosage: 1 UNK, QD
     Route: 048
  9. IMURAN [Concomitant]
     Indication: RHEUMATOID ARTHRITIS
     Dosage: 50 MG, BID
     Route: 048
  10. MULTIVITAMIN                       /00097801/ [Concomitant]
     Indication: SUPPLEMENTATION THERAPY
     Dosage: DAILY
     Route: 048
  11. OXYCODONE HCL [Concomitant]
     Indication: BREAKTHROUGH PAIN
     Dosage: 30 MG, PRN
     Route: 048

REACTIONS (7)
  - CHEST DISCOMFORT [None]
  - PRODUCT QUALITY ISSUE [None]
  - FATIGUE [None]
  - DIZZINESS [None]
  - THROAT TIGHTNESS [None]
  - INADEQUATE ANALGESIA [None]
  - DYSPHAGIA [None]
